FAERS Safety Report 19294864 (Version 1)
Quarter: 2021Q2

REPORT INFORMATION
  Report Type: Report from Study
  Country: None (occurrence: US)
  Receive Date: 20210524
  Receipt Date: 20210524
  Transmission Date: 20210717
  Serious: Yes (Hospitalization, Other)
  Sender: FDA-Public Use
  Company Number: US-ABBVIE-21K-163-3834001-00

PATIENT
  Age: 85 Year
  Sex: Female

DRUGS (2)
  1. COVID?19 VACCINE NOS. [Concomitant]
     Active Substance: COVID-19 VACCINE NOS
     Indication: COVID-19 IMMUNISATION
     Route: 030
  2. HUMIRA [Suspect]
     Active Substance: ADALIMUMAB
     Indication: PSORIASIS
     Route: 058

REACTIONS (6)
  - Fall [Recovered/Resolved]
  - Hip fracture [Unknown]
  - Cardiovascular disorder [Unknown]
  - Obstructive airways disorder [Not Recovered/Not Resolved]
  - Pulmonary thrombosis [Unknown]
  - Hospice care [Unknown]

NARRATIVE: CASE EVENT DATE: 202102
